FAERS Safety Report 20990882 (Version 1)
Quarter: 2022Q2

REPORT INFORMATION
  Report Type: Spontaneous
  Country: US (occurrence: US)
  Receive Date: 20220622
  Receipt Date: 20220622
  Transmission Date: 20220721
  Serious: No
  Sender: FDA-Public Use
  Company Number: US-BRISTOL-MYERS SQUIBB COMPANY-2022-048428

PATIENT
  Age: 19 Year
  Sex: Male
  Weight: 79.38 kg

DRUGS (1)
  1. NULOJIX [Suspect]
     Active Substance: BELATACEPT
     Indication: Renal transplant
     Dosage: DOSE : 362.5MG;     FREQ : EVERY 4 WEEKS
     Route: 042

REACTIONS (1)
  - Ear infection [Unknown]

NARRATIVE: CASE EVENT DATE: 20220501
